FAERS Safety Report 4621575-3 (Version None)
Quarter: 2005Q1

REPORT INFORMATION
  Report Type: 
  Country: None (occurrence: None)
  Receive Date: 20050328
  Receipt Date: 20050310
  Transmission Date: 20050727
  Serious: No
  Sender: FDA-Public Use
  Company Number: 10600

PATIENT
  Sex: Female

DRUGS (4)
  1. DAUNORUBICIN HCL [Suspect]
     Indication: ACUTE MYELOID LEUKAEMIA
  2. CYTARABINE [Suspect]
  3. METHYLPREDNISOLONE [Suspect]
  4. IDARUBICIN HCL [Suspect]

REACTIONS (19)
  - AMNIOTIC FLUID VOLUME DECREASED [None]
  - APGAR SCORE LOW [None]
  - ASPARTATE AMINOTRANSFERASE INCREASED [None]
  - BASE EXCESS DECREASED [None]
  - BIOPSY CHORIONIC VILLOUS ABNORMAL [None]
  - BLOOD CREATINE PHOSPHOKINASE INCREASED [None]
  - BLOOD LACTATE DEHYDROGENASE INCREASED [None]
  - BLOOD PH DECREASED [None]
  - BONE MARROW DEPRESSION [None]
  - CAESAREAN SECTION [None]
  - DRUG EXPOSURE DURING PREGNANCY [None]
  - FOETAL HEART RATE ABNORMAL [None]
  - FOETAL HEART RATE DECELERATION [None]
  - INDUCED LABOUR [None]
  - LIVER DISORDER [None]
  - PCO2 INCREASED [None]
  - PLACENTAL DISORDER [None]
  - PO2 DECREASED [None]
  - SMALL FOR DATES BABY [None]
